FAERS Safety Report 6509076-9 (Version None)
Quarter: 2009Q4

REPORT INFORMATION
  Report Type: 
  Country: None (occurrence: None)
  Receive Date: 20091221
  Receipt Date: 20091209
  Transmission Date: 20100525
  Serious: No
  Sender: FDA-Public Use
  Company Number: US-ELI_LILLY_AND_COMPANY-US200912002442

PATIENT
  Age: 75 Year
  Sex: Female

DRUGS (1)
  1. ZYPREXA [Suspect]
     Indication: ANXIETY
     Dosage: 5 MG, UNK
     Dates: start: 20090201

REACTIONS (8)
  - BACK PAIN [None]
  - BALANCE DISORDER [None]
  - CONTUSION [None]
  - COUGH [None]
  - GAIT DISTURBANCE [None]
  - HYPERHIDROSIS [None]
  - OFF LABEL USE [None]
  - THROMBOSIS [None]
